FAERS Safety Report 12779918 (Version 3)
Quarter: 2016Q4

REPORT INFORMATION
  Report Type: Spontaneous
  Country: US (occurrence: US)
  Receive Date: 20160926
  Receipt Date: 20161213
  Transmission Date: 20170207
  Serious: Yes (Hospitalization)
  Sender: FDA-Public Use
  Company Number: US-PFIZER INC-2016447923

PATIENT
  Age: 70 Year

DRUGS (1)
  1. CELECOXIB. [Suspect]
     Active Substance: CELECOXIB
     Dosage: UNK

REACTIONS (4)
  - Arthritis [Unknown]
  - Condition aggravated [Unknown]
  - Gastroenteritis [Recovered/Resolved]
  - Drug ineffective [Recovered/Resolved]
